FAERS Safety Report 4737874-0 (Version None)
Quarter: 2005Q3

REPORT INFORMATION
  Report Type: 
  Country: None (occurrence: None)
  Receive Date: 20050809
  Receipt Date: 20050726
  Transmission Date: 20060218
  Serious: Yes (Hospitalization)
  Sender: FDA-Public Use
  Company Number: HQWYE586828JUL05

PATIENT
  Sex: Female
  Weight: 49 kg

DRUGS (4)
  1. ENBREL [Suspect]
     Indication: BEHCET'S SYNDROME
     Route: 058
     Dates: start: 20050327, end: 20050718
  2. PREDNISOLONE [Suspect]
     Indication: BEHCET'S SYNDROME
     Route: 065
     Dates: start: 20050220
  3. AZATHIOPRINE [Suspect]
     Indication: BEHCET'S SYNDROME
     Route: 065
     Dates: start: 20050224
  4. COLCHICINE [Concomitant]
     Indication: BEHCET'S SYNDROME
     Dates: start: 20050115

REACTIONS (1)
  - PULMONARY TUBERCULOSIS [None]
